FAERS Safety Report 9351825 (Version 1)
Quarter: 2013Q2

REPORT INFORMATION
  Report Type: Report from Study
  Country: US (occurrence: US)
  Receive Date: 20130617
  Receipt Date: 20130617
  Transmission Date: 20140414
  Serious: Yes (Hospitalization, Other)
  Sender: FDA-Public Use
  Company Number: US-ABBOTT-13P-163-1101538-00

PATIENT
  Age: 58 Year
  Sex: Female
  Weight: 74.91 kg

DRUGS (19)
  1. HUMIRA [Suspect]
     Indication: RHEUMATOID ARTHRITIS
     Dates: start: 20110318
  2. METHOTREXATE [Concomitant]
     Indication: RHEUMATOID ARTHRITIS
  3. MOBIC [Concomitant]
     Indication: OSTEOARTHRITIS
  4. KLONOPIN [Concomitant]
     Indication: TREMOR
  5. XANAFLEX [Concomitant]
     Indication: MUSCLE SPASMS
  6. INDEROL LA [Concomitant]
     Indication: MIGRAINE
  7. FIORICET [Concomitant]
     Indication: MIGRAINE
  8. LYRICA [Concomitant]
     Indication: NERVE INJURY
  9. VITAMIN D [Concomitant]
     Indication: VITAMIN D DECREASED
  10. PERCOCET [Concomitant]
     Indication: PAIN
  11. PREDNISONE [Concomitant]
     Indication: RHEUMATOID ARTHRITIS
  12. ZOFRAN [Concomitant]
     Indication: GASTROOESOPHAGEAL REFLUX DISEASE
  13. FOLIC ACID [Concomitant]
     Indication: VITAMIN SUPPLEMENTATION
  14. STOOL SOFTENER [Concomitant]
     Indication: SUPPLEMENTATION THERAPY
  15. PROBIOTIC [Concomitant]
     Indication: SUPPLEMENTATION THERAPY
  16. EPS SACCHAROMYCES [Concomitant]
     Indication: SUPPLEMENTATION THERAPY
  17. CLARITIN [Concomitant]
     Indication: HYPERSENSITIVITY
  18. CLARITIN [Concomitant]
     Indication: HYPERSENSITIVITY
  19. PATENASE [Concomitant]
     Indication: HYPERSENSITIVITY

REACTIONS (4)
  - Intervertebral disc degeneration [Recovering/Resolving]
  - Exostosis [Recovered/Resolved]
  - Tendon rupture [Recovered/Resolved]
  - Ingrowing nail [Recovered/Resolved]
